FAERS Safety Report 6541617-8 (Version None)
Quarter: 2010Q1

REPORT INFORMATION
  Report Type: 
  Country: None (occurrence: None)
  Receive Date: 20100119
  Receipt Date: 20100111
  Transmission Date: 20100710
  Serious: No
  Sender: FDA-Public Use
  Company Number: US-B.I. PHARMACEUTICALS,INC./RIDGEFIELD-2009-BP-12297BP

PATIENT
  Age: 76 Year
  Sex: Female

DRUGS (5)
  1. COMBIVENT [Suspect]
     Indication: ASTHMA
     Dosage: 8 PUF
     Route: 055
     Dates: start: 19970101
  2. DIOVAN [Concomitant]
     Indication: HYPERTENSION
  3. NORVASC [Concomitant]
     Indication: HYPERTENSION
  4. HYDROCHLOROTHIAZIDE [Concomitant]
     Indication: HYPERTENSION
  5. ADVAIR [Concomitant]
     Indication: ASTHMA

REACTIONS (2)
  - DYSGEUSIA [None]
  - NAUSEA [None]
